FAERS Safety Report 5153472-1 (Version None)
Quarter: 2006Q4

REPORT INFORMATION
  Report Type: 
  Country: None (occurrence: None)
  Receive Date: 20061117
  Receipt Date: 20061107
  Transmission Date: 20070319
  Serious: Yes (Other)
  Sender: FDA-Public Use
  Company Number: GB-ABBOTT-06P-167-0349977-00

PATIENT
  Sex: Male

DRUGS (2)
  1. HUMIRA [Suspect]
     Indication: DRUG USE FOR UNKNOWN INDICATION
     Dates: start: 20060701
  2. HUMIRA [Suspect]
     Dates: start: 20061017, end: 20061027

REACTIONS (3)
  - CHEST PAIN [None]
  - DYSPNOEA [None]
  - UNEVALUABLE EVENT [None]
